FAERS Safety Report 5193679-0 (Version None)
Quarter: 2006Q4

REPORT INFORMATION
  Report Type: 
  Country: None (occurrence: None)
  Receive Date: 20061221
  Receipt Date: 20061211
  Transmission Date: 20070319
  Serious: Yes (Hospitalization)
  Sender: FDA-Public Use
  Company Number: 15309

PATIENT
  Age: 74 Year
  Sex: Male

DRUGS (13)
  1. FLUOROURACIL [Suspect]
     Indication: COLORECTAL CANCER METASTATIC
     Dosage: 860 MG OTH PU
     Dates: start: 20060329
  2. FLUOROURACIL [Suspect]
     Indication: COLORECTAL CANCER METASTATIC
     Dosage: 5160 MG OTH IV
     Route: 042
  3. LEUCOVORIN CALCIUM [Suspect]
     Indication: COLORECTAL CANCER METASTATIC
     Dosage: 860 MG OTH IV
     Route: 042
     Dates: start: 20060329
  4. BEVACIZUMAB [Suspect]
     Indication: COLORECTAL CANCER METASTATIC
     Dosage: 465 MG OTH IV
     Route: 042
     Dates: start: 20060329
  5. CETUXIMAB [Suspect]
     Indication: COLORECTAL CANCER METASTATIC
     Dosage: 538 MG WEEKLY IV
     Route: 042
     Dates: start: 20060329, end: 20061101
  6. CORTISONE ACETATE [Concomitant]
  7. FLUDROCORTISON [Concomitant]
  8. COUMADIN [Concomitant]
  9. CIPRO [Concomitant]
  10. PROSCAR [Concomitant]
  11. ZOLOFT [Concomitant]
  12. PHENERGAN  /00033002/ [Concomitant]
  13. TYLENOL  /00020001/ [Concomitant]

REACTIONS (12)
  - ADHESION [None]
  - ANAEMIA [None]
  - BLOOD POTASSIUM DECREASED [None]
  - BLOOD SODIUM DECREASED [None]
  - GASTROENTERITIS [None]
  - HYDRONEPHROSIS [None]
  - PANCREATIC ATROPHY [None]
  - PERITONEAL NEOPLASM [None]
  - RASH ERYTHEMATOUS [None]
  - RENAL CYST [None]
  - SMALL INTESTINAL OBSTRUCTION [None]
  - WHITE BLOOD CELL COUNT DECREASED [None]
